FAERS Safety Report 25167031 (Version 1)
Quarter: 2025Q2

REPORT INFORMATION
  Report Type: Spontaneous
  Country: US (occurrence: US)
  Receive Date: 20250407
  Receipt Date: 20250407
  Transmission Date: 20250716
  Serious: Yes (Other)
  Sender: MYLAN
  Company Number: US-MYLANLABS-2025M1029490

PATIENT
  Age: 77 Year
  Sex: Male

DRUGS (8)
  1. VORICONAZOLE [Suspect]
     Active Substance: VORICONAZOLE
     Indication: Keratitis fungal
  2. VORICONAZOLE [Suspect]
     Active Substance: VORICONAZOLE
     Route: 065
  3. VORICONAZOLE [Suspect]
     Active Substance: VORICONAZOLE
     Route: 065
  4. VORICONAZOLE [Suspect]
     Active Substance: VORICONAZOLE
  5. NATAMYCIN [Suspect]
     Active Substance: NATAMYCIN
     Indication: Keratitis fungal
  6. NATAMYCIN [Suspect]
     Active Substance: NATAMYCIN
     Route: 065
  7. NATAMYCIN [Suspect]
     Active Substance: NATAMYCIN
     Route: 065
  8. NATAMYCIN [Suspect]
     Active Substance: NATAMYCIN

REACTIONS (1)
  - Drug ineffective [Unknown]
